FAERS Safety Report 17099674 (Version 1)
Quarter: 2019Q4

REPORT INFORMATION
  Report Type: Spontaneous
  Country: CH (occurrence: CH)
  Receive Date: 20191202
  Receipt Date: 20191202
  Transmission Date: 20200122
  Serious: Yes (Other)
  Sender: FDA-Public Use
  Company Number: CH-PFIZER INC-2019510052

PATIENT
  Age: 61 Year
  Sex: Female

DRUGS (9)
  1. IMIPRAMINE [Interacting]
     Active Substance: IMIPRAMINE
     Indication: ADJUSTMENT DISORDER WITH DEPRESSED MOOD
     Dosage: 25 MG, 3X/DAY
     Dates: start: 19810323
  2. CYCLOPHOSPHAMIDE. [Concomitant]
     Active Substance: CYCLOPHOSPHAMIDE
     Indication: BREAST CANCER METASTATIC
     Dosage: 150 MG, DAILY
     Route: 048
     Dates: start: 19810425
  3. METHOTREXATE SODIUM. [Interacting]
     Active Substance: METHOTREXATE SODIUM
     Dosage: UNK, WEEKLY (SECOND ATTEMPT)
     Route: 042
     Dates: start: 198104, end: 198104
  4. 5-FU [FLUOROURACIL] [Concomitant]
     Active Substance: FLUOROURACIL
     Indication: BREAST CANCER METASTATIC
     Dosage: 1000 MG, WEEKLY
     Route: 042
     Dates: start: 19810425
  5. METHOTREXATE SODIUM. [Interacting]
     Active Substance: METHOTREXATE SODIUM
     Dosage: 30 MG, WEEKLY (THIRD)
     Route: 042
     Dates: start: 19810504, end: 198105
  6. LEVOPROMAZIN [Concomitant]
     Active Substance: LEVOMEPROMAZINE
     Indication: ADJUSTMENT DISORDER WITH DEPRESSED MOOD
     Dosage: 25 MG, 2X/DAY
     Dates: start: 19810323
  7. METHOTREXATE SODIUM. [Suspect]
     Active Substance: METHOTREXATE SODIUM
     Indication: BREAST CANCER METASTATIC
     Dosage: 20 MG, WEEKLY
     Route: 042
     Dates: start: 198104, end: 198104
  8. TAMOXIFEN [Concomitant]
     Active Substance: TAMOXIFEN
     Indication: BREAST CANCER METASTATIC
     Dosage: 20 MG, DAILY
     Route: 048
     Dates: start: 19810425
  9. PREDNISONE. [Concomitant]
     Active Substance: PREDNISONE
     Indication: BREAST CANCER METASTATIC
     Dosage: 50 MG, DAILY
     Route: 048
     Dates: start: 19810425

REACTIONS (11)
  - Palpitations [Recovered/Resolved]
  - Arrhythmia [Recovered/Resolved]
  - Drug interaction [Recovered/Resolved]
  - Supraventricular extrasystoles [Recovered/Resolved]
  - Feeling abnormal [Recovered/Resolved]
  - Loss of consciousness [Recovered/Resolved]
  - Muscle spasms [Recovered/Resolved]
  - Dizziness [Recovered/Resolved]
  - Aphasia [Recovered/Resolved]
  - Nausea [Recovered/Resolved]
  - Neurological symptom [Recovered/Resolved]

NARRATIVE: CASE EVENT DATE: 198104
